FAERS Safety Report 4924868-5 (Version None)
Quarter: 2006Q1

REPORT INFORMATION
  Report Type: 
  Country: None (occurrence: None)
  Receive Date: 20060227
  Receipt Date: 20060106
  Transmission Date: 20060701
  Serious: Yes (Life-Threatening)
  Sender: FDA-Public Use
  Company Number: FR-MERCK-0601FRA00021

PATIENT
  Age: 75 Year
  Sex: Male
  Weight: 82 kg

DRUGS (7)
  1. CANCIDAS [Suspect]
     Indication: ASPERGILLOSIS
     Route: 041
     Dates: start: 20051127, end: 20051209
  2. AMIODARONE HYDROCHLORIDE [Suspect]
     Indication: ATRIAL FIBRILLATION
     Route: 065
     Dates: start: 20051113, end: 20051123
  3. CIPROFLOXACIN HYDROCHLORIDE [Suspect]
     Indication: INTERSTITIAL LUNG DISEASE
     Route: 065
     Dates: start: 20051125, end: 20051130
  4. VORICONAZOLE [Suspect]
     Indication: ASPERGILLOSIS
     Route: 042
     Dates: start: 20051117, end: 20051129
  5. CEFTAZIDIME [Concomitant]
     Route: 065
     Dates: start: 20051114
  6. TEICOPLANIN [Concomitant]
     Route: 065
     Dates: start: 20051125
  7. OMEPRAZOLE [Concomitant]
     Route: 065
     Dates: start: 20051124, end: 20051209

REACTIONS (4)
  - ARRHYTHMIA [None]
  - BRADYCARDIA [None]
  - CARDIAC ARREST [None]
  - ELECTROCARDIOGRAM QT PROLONGED [None]
